FAERS Safety Report 7804556-8 (Version None)
Quarter: 2011Q4

REPORT INFORMATION
  Report Type: 
  Country: None (occurrence: None)
  Receive Date: 20111010
  Receipt Date: 20110928
  Transmission Date: 20120403
  Serious: Yes (Other)
  Sender: FDA-Public Use
  Company Number: PHEH2011US03478

PATIENT
  Sex: Male

DRUGS (2)
  1. TOBI [Suspect]
     Dosage: 300 MG, BID
     Dates: start: 20090224
  2. PULMOZYME [Concomitant]

REACTIONS (1)
  - PSEUDOMONAS INFECTION [None]
